FAERS Safety Report 6465553-0 (Version None)
Quarter: 2009Q4

REPORT INFORMATION
  Report Type: 
  Country: None (occurrence: None)
  Receive Date: 20091201
  Receipt Date: 20081218
  Transmission Date: 20100525
  Serious: No
  Sender: FDA-Public Use
  Company Number: US-AMGEN-KDL315308

PATIENT
  Sex: Female

DRUGS (2)
  1. ENBREL [Suspect]
     Indication: PSORIATIC ARTHROPATHY
     Route: 058
     Dates: start: 20080912
  2. ENBREL [Suspect]
     Indication: PSORIASIS

REACTIONS (13)
  - ANIMAL SCRATCH [None]
  - DRUG INEFFECTIVE [None]
  - ERYTHEMA [None]
  - INJECTION SITE ERYTHEMA [None]
  - INJECTION SITE PAIN [None]
  - INJECTION SITE PRURITUS [None]
  - INJECTION SITE REACTION [None]
  - INJECTION SITE RECALL REACTION [None]
  - INJECTION SITE SCAB [None]
  - INJECTION SITE SWELLING [None]
  - PRURITUS [None]
  - PSORIASIS [None]
  - THERAPEUTIC RESPONSE DECREASED [None]
